FAERS Safety Report 8176656-7 (Version None)
Quarter: 2012Q1

REPORT INFORMATION
  Report Type: 
  Country: None (occurrence: None)
  Receive Date: 20120301
  Receipt Date: 20120227
  Transmission Date: 20120608
  Serious: Yes (Other)
  Sender: FDA-Public Use
  Company Number: US-JNJFOC-20120213885

PATIENT
  Age: 31 Year
  Sex: Female
  Weight: 78.02 kg

DRUGS (1)
  1. LISTERINE TOTAL CARE PLUS WHITENING [Suspect]
     Indication: DENTAL CARE
     Route: 061
     Dates: start: 20120218, end: 20120224

REACTIONS (1)
  - TOOTH FRACTURE [None]
